FAERS Safety Report 9392150 (Version 1)
Quarter: 2013Q3

REPORT INFORMATION
  Report Type: Spontaneous
  Country: BR (occurrence: BR)
  Receive Date: 20130709
  Receipt Date: 20130709
  Transmission Date: 20140515
  Serious: Yes (Other)
  Sender: FDA-Public Use
  Company Number: BR-ABBOTT-13X-020-1114347-00

PATIENT
  Age: 54 Year
  Sex: Male
  Weight: 60 kg

DRUGS (2)
  1. DEPAKENE [Suspect]
     Indication: CONVULSION
     Route: 048
     Dates: end: 20130701
  2. DEPAKOTE [Concomitant]
     Indication: PRODUCT USED FOR UNKNOWN INDICATION
     Dates: start: 20130701

REACTIONS (9)
  - Syncope [Unknown]
  - Convulsion [Unknown]
  - Amnesia [Unknown]
  - Decreased appetite [Unknown]
  - Weight decreased [Unknown]
  - Drooling [Unknown]
  - Urinary incontinence [Unknown]
  - Headache [Unknown]
  - Nervousness [Unknown]
